FAERS Safety Report 17898003 (Version 2)
Quarter: 2020Q2

REPORT INFORMATION
  Report Type: Spontaneous
  Country: US (occurrence: US)
  Receive Date: 20200615
  Receipt Date: 20200623
  Transmission Date: 20200714
  Serious: Yes (Hospitalization, Other)
  Sender: FDA-Public Use
  Company Number: US-MYLANLABS-2020M1055779

PATIENT
  Age: 1 Year
  Sex: Female
  Weight: 12 kg

DRUGS (3)
  1. CLONIDINE TRANSDERMAL SYSTEM [Suspect]
     Active Substance: CLONIDINE
     Indication: AUTONOMIC NERVOUS SYSTEM IMBALANCE
     Dosage: ONCE WEEKLY
     Route: 062
     Dates: start: 20200409
  2. CLONIDINE. [Concomitant]
     Active Substance: CLONIDINE
     Dosage: UNK
  3. CLONIDINE TRANSDERMAL SYSTEM [Suspect]
     Active Substance: CLONIDINE
     Indication: AUTOIMMUNE DISORDER

REACTIONS (13)
  - Heart rate increased [Unknown]
  - Product quality issue [Unknown]
  - Device related infection [Recovered/Resolved]
  - Withdrawal syndrome [Unknown]
  - Drug ineffective for unapproved indication [Not Recovered/Not Resolved]
  - Off label use [Unknown]
  - Pneumonia aspiration [Recovering/Resolving]
  - Feeling abnormal [Unknown]
  - Inappropriate schedule of product administration [Unknown]
  - Cardiac arrest [Recovered/Resolved]
  - Anxiety [Unknown]
  - Respiratory rate increased [Unknown]
  - Sedation complication [Unknown]

NARRATIVE: CASE EVENT DATE: 2020
